FAERS Safety Report 4822716-5 (Version None)
Quarter: 2005Q4

REPORT INFORMATION
  Report Type: 
  Country: None (occurrence: None)
  Receive Date: 20051108
  Receipt Date: 20051025
  Transmission Date: 20060501
  Serious: Yes (Other)
  Sender: FDA-Public Use
  Company Number: US-AMGEN-US155634

PATIENT
  Sex: Female

DRUGS (11)
  1. ENBREL [Suspect]
     Indication: PSORIATIC ARTHROPATHY
     Dates: start: 20040101
  2. LEVSIN [Concomitant]
     Route: 065
  3. CARAFATE [Concomitant]
     Route: 065
  4. ALLEGRA [Concomitant]
  5. MOBIC [Concomitant]
  6. ZOCOR [Concomitant]
  7. LEVOXYL [Concomitant]
  8. VERAPAMIL [Concomitant]
  9. HYDROCHLOROTHIAZIDE [Concomitant]
  10. NEXIUM [Concomitant]
  11. COMBIPATCH [Concomitant]

REACTIONS (1)
  - PERNICIOUS ANAEMIA [None]
